FAERS Safety Report 6119036-8 (Version None)
Quarter: 2009Q1

REPORT INFORMATION
  Report Type: 
  Country: None (occurrence: None)
  Receive Date: 20090316
  Receipt Date: 20090309
  Transmission Date: 20090719
  Serious: Yes (Other)
  Sender: FDA-Public Use
  Company Number: US-BAYER-200915028NA

PATIENT
  Age: 36 Year
  Sex: Female

DRUGS (3)
  1. YAZ [Suspect]
     Indication: MENSTRUATION IRREGULAR
     Route: 048
     Dates: start: 20080501, end: 20080901
  2. YAZ [Suspect]
     Route: 048
     Dates: start: 20081201, end: 20090305
  3. SYNTHROID [Concomitant]
     Indication: HYPOTHYROIDISM
     Dates: start: 20000101

REACTIONS (6)
  - ACNE [None]
  - ANXIETY [None]
  - FATIGUE [None]
  - HEADACHE [None]
  - MENTAL DISORDER [None]
  - SOCIAL PHOBIA [None]
